FAERS Safety Report 7095480-X (Version None)
Quarter: 2010Q4

REPORT INFORMATION
  Report Type: 
  Country: None (occurrence: None)
  Receive Date: 20101111
  Receipt Date: 20101029
  Transmission Date: 20110411
  Serious: Yes (Death)
  Sender: FDA-Public Use
  Company Number: BR-ACTELION-A-CH2010-35721

PATIENT
  Sex: Female

DRUGS (5)
  1. BOSENTAN TABLET 62.5 MG ROW [Suspect]
     Indication: PULMONARY ARTERIAL HYPERTENSION
     Dosage: 125 MG, BID
     Route: 048
     Dates: start: 20071114, end: 20100413
  2. BOSENTAN TABLET 62.5 MG ROW [Suspect]
     Dosage: 62.5 MG, BID
     Route: 048
     Dates: start: 20071012, end: 20071113
  3. FUROSEMIDE [Concomitant]
  4. HYDROCHLOROTHIAZIDE [Concomitant]
  5. MAREVAN [Concomitant]

REACTIONS (4)
  - CARDIAC FAILURE ACUTE [None]
  - CONDITION AGGRAVATED [None]
  - DISEASE PROGRESSION [None]
  - PULMONARY ARTERIAL HYPERTENSION [None]
